FAERS Safety Report 9478277 (Version 1)
Quarter: 2013Q3

REPORT INFORMATION
  Report Type: Spontaneous
  Country: IT (occurrence: None)
  Receive Date: 20130821
  Receipt Date: 20130821
  Transmission Date: 20140515
  Serious: Yes (Hospitalization)
  Sender: FDA-Public Use
  Company Number: AUR-APL-2013-06881

PATIENT
  Sex: Female

DRUGS (1)
  1. LEVOFLOXACIN [Suspect]

REACTIONS (3)
  - Erythema [None]
  - Pruritus [None]
  - Pyrexia [None]
